FAERS Safety Report 10251005 (Version 2)
Quarter: 2015Q3

REPORT INFORMATION
  Report Type: Spontaneous
  Country: US (occurrence: US)
  Receive Date: 20140620
  Receipt Date: 20150911
  Transmission Date: 20151125
  Serious: Yes (Death, Other)
  Sender: FDA-Public Use
  Company Number: US-MERCK-1406USA009507

PATIENT
  Sex: Male
  Weight: 86.17 kg

DRUGS (1)
  1. JANUVIA [Suspect]
     Active Substance: SITAGLIPTIN PHOSPHATE
     Indication: TYPE 2 DIABETES MELLITUS
     Dosage: 100 MG, QD
     Route: 048
     Dates: start: 20130215, end: 20130808

REACTIONS (13)
  - Escherichia bacteraemia [Unknown]
  - Anaemia of malignant disease [Unknown]
  - Bile duct stent insertion [Unknown]
  - Arthritis [Unknown]
  - Stent placement [Unknown]
  - Adenocarcinoma pancreas [Unknown]
  - Emotional distress [Unknown]
  - Hyperlipidaemia [Unknown]
  - Death [Fatal]
  - Hypertension [Unknown]
  - Knee arthroplasty [Unknown]
  - Cataract operation [Unknown]
  - Tonsillectomy [Unknown]

NARRATIVE: CASE EVENT DATE: 20130827
